FAERS Safety Report 6812329-8 (Version None)
Quarter: 2010Q2

REPORT INFORMATION
  Report Type: 
  Country: None (occurrence: None)
  Receive Date: 20100628
  Receipt Date: 20100616
  Transmission Date: 20101027
  Serious: Yes (Other)
  Sender: FDA-Public Use
  Company Number: 013905

PATIENT
  Sex: Male

DRUGS (1)
  1. ROTIGOTINE (ROTIGOTINE) [Suspect]
     Dosage: (8 MG QD TRANSDERMAL)
     Route: 062
     Dates: start: 20100506

REACTIONS (1)
  - GASTROINTESTINAL SURGERY [None]
